FAERS Safety Report 4486609-8 (Version None)
Quarter: 2004Q4

REPORT INFORMATION
  Report Type: 
  Country: None (occurrence: None)
  Receive Date: 20041027
  Receipt Date: 20041019
  Transmission Date: 20050328
  Serious: Yes (Death)
  Sender: FDA-Public Use
  Company Number: US-BRISTOL-MYERS SQUIBB COMPANY-12743738

PATIENT
  Age: 25 Year

DRUGS (3)
  1. DILTIAZEM HCL [Suspect]
     Route: 051
  2. PROPRANOLOL [Suspect]
     Route: 051
  3. ETHANOL [Suspect]
     Route: 051

REACTIONS (2)
  - ADVERSE DRUG REACTION [None]
  - DEATH [None]
